FAERS Safety Report 8400812-3 (Version None)
Quarter: 2012Q2

REPORT INFORMATION
  Report Type: 
  Country: None (occurrence: None)
  Receive Date: 20120531
  Receipt Date: 20120525
  Transmission Date: 20120825
  Serious: Yes (Hospitalization)
  Sender: FDA-Public Use
  Company Number: US-TEVA-334231USA

PATIENT
  Sex: Female

DRUGS (1)
  1. COPAXONE [Suspect]
     Indication: MULTIPLE SCLEROSIS
     Dosage: 20 MILLIGRAM;
     Route: 058
     Dates: start: 20060120

REACTIONS (6)
  - SEPSIS [None]
  - FALL [None]
  - MALAISE [None]
  - SWELLING [None]
  - FEMUR FRACTURE [None]
  - KIDNEY INFECTION [None]
